FAERS Safety Report 15067341 (Version 1)
Quarter: 2018Q2

REPORT INFORMATION
  Report Type: Spontaneous
  Country: US (occurrence: US)
  Receive Date: 20180626
  Receipt Date: 20180626
  Transmission Date: 20180711
  Serious: Yes (Hospitalization)
  Sender: FDA-Public Use
  Company Number: US-FERA PHARMACEUTICALS, LLC-2018PRG00225

PATIENT
  Age: 30 Year
  Sex: Male

DRUGS (2)
  1. LIDOCAINE. [Concomitant]
     Active Substance: LIDOCAINE
     Dosage: 1 ML, ONCE
     Route: 008
  2. DEXAMETHASONE. [Suspect]
     Active Substance: DEXAMETHASONE
     Indication: RADICULAR PAIN
     Dosage: 10 MG, ONCE (1 ML, 10 MG/ML)
     Route: 008

REACTIONS (3)
  - Hypokalaemia [Unknown]
  - Paralysis [Recovering/Resolving]
  - Insulin resistance [Unknown]
